FAERS Safety Report 12132573 (Version 1)
Quarter: 2016Q1

REPORT INFORMATION
  Report Type: Spontaneous
  Country: US (occurrence: US)
  Receive Date: 20160301
  Receipt Date: 20160301
  Transmission Date: 20160526
  Serious: No
  Sender: FDA-Public Use
  Company Number: US-JNJFOC-20160119102

PATIENT
  Sex: Female

DRUGS (1)
  1. XARELTO [Suspect]
     Active Substance: RIVAROXABAN
     Indication: CARDIAC OPERATION
     Dosage: 10 MG/ TABLETS/ 20 MG
     Route: 048

REACTIONS (5)
  - Wrong technique in product usage process [Unknown]
  - Drug dispensing error [Unknown]
  - Sensory disturbance [Not Recovered/Not Resolved]
  - Malaise [Not Recovered/Not Resolved]
  - Dizziness [Unknown]
